FAERS Safety Report 8976122 (Version 1)
Quarter: 2012Q4

REPORT INFORMATION
  Report Type: 
  Country: BR (occurrence: BR)
  Receive Date: 20121220
  Receipt Date: 20121220
  Transmission Date: 20130627
  Serious: Yes (Other)
  Sender: FDA-Public Use
  Company Number: PHHY2012BR117491

PATIENT
  Sex: Female
  Weight: 55 kg

DRUGS (7)
  1. DIOVAN AMLO FIX [Suspect]
     Indication: HYPERTENSION
     Dosage: 1 DF (320/5mg), daily
     Route: 048
  2. INDAPEN SR [Concomitant]
     Dosage: 1 DF
     Route: 048
  3. PANTOPRAZOL [Concomitant]
     Indication: ABDOMINAL DISCOMFORT
     Dosage: 20 mg, daily
     Route: 048
  4. RITMONORM [Concomitant]
     Indication: MEDICAL DEVICE COMPLICATION
     Dosage: 0.5DF, TID
     Route: 048
  5. NEUTROFER [Concomitant]
     Indication: ANAEMIA
     Dosage: 150 mg, daily
     Route: 048
  6. CITONEURIN                         /00499701/ [Concomitant]
     Indication: VITAMIN B COMPLEX DEFICIENCY
     Dosage: 1 DF(5000DF), QMO
     Dates: start: 201210
  7. VYTORIN [Concomitant]
     Dosage: 1 DF (10/20mg), QD (every night)
     Route: 048

REACTIONS (4)
  - Anaemia [Unknown]
  - Vitamin B complex deficiency [Unknown]
  - Syncope [Recovered/Resolved]
  - Dizziness [Recovered/Resolved]
